FAERS Safety Report 10205550 (Version 1)
Quarter: 2014Q2

REPORT INFORMATION
  Report Type: Spontaneous
  Country: US (occurrence: US)
  Receive Date: 20140529
  Receipt Date: 20140529
  Transmission Date: 20141212
  Serious: No
  Sender: FDA-Public Use
  Company Number: US-TEVA-483954USA

PATIENT
  Sex: Female

DRUGS (1)
  1. PROAIR HFA [Suspect]
     Indication: ASTHMA
     Dosage: ONE PUFF IN THE MORNING AND THEN AS NEEDED

REACTIONS (3)
  - Asthma [Unknown]
  - Chest discomfort [Unknown]
  - Drug ineffective [Unknown]
